FAERS Safety Report 6273621-1 (Version None)
Quarter: 2009Q3

REPORT INFORMATION
  Report Type: 
  Country: None (occurrence: None)
  Receive Date: 20090715
  Receipt Date: 20090623
  Transmission Date: 20100115
  Serious: Yes (Hospitalization, Other)
  Sender: FDA-Public Use
  Company Number: ADE2009-0703

PATIENT
  Age: 67 Year
  Sex: Female

DRUGS (5)
  1. METFORMIN HCL [Suspect]
     Dosage: 500MG BID
  2. ISOSORBIDE MONONITRATE [Concomitant]
  3. SALICYLIC ACID [Concomitant]
  4. DILTIAZEM [Concomitant]
  5. ACARBOSE [Concomitant]

REACTIONS (4)
  - ANTINUCLEAR ANTIBODY POSITIVE [None]
  - HEPATITIS CHOLESTATIC [None]
  - HEPATOMEGALY [None]
  - HYPERGLYCAEMIA [None]
